FAERS Safety Report 11395182 (Version 1)
Quarter: 2015Q3

REPORT INFORMATION
  Report Type: Spontaneous
  Country: IN (occurrence: IN)
  Receive Date: 20150819
  Receipt Date: 20150819
  Transmission Date: 20151125
  Serious: Yes (Life-Threatening)
  Sender: FDA-Public Use
  Company Number: IN-GE HEALTHCARE MEDICAL DIAGNOSTICS-VISP-PR-1508S-0316

PATIENT
  Age: 57 Year
  Sex: Female

DRUGS (8)
  1. VISIPAQUE [Suspect]
     Active Substance: IODIXANOL
     Indication: EJECTION FRACTION DECREASED
  2. VISIPAQUE [Suspect]
     Active Substance: IODIXANOL
     Indication: DIAGNOSTIC PROCEDURE
  3. AVIL [Concomitant]
     Active Substance: PHENIRAMINE
  4. TRAMADOL. [Suspect]
     Active Substance: TRAMADOL
  5. VISIPAQUE [Suspect]
     Active Substance: IODIXANOL
     Indication: HYPERTENSION
  6. HYDROCORTISONE. [Concomitant]
     Active Substance: HYDROCORTISONE
  7. VISIPAQUE [Suspect]
     Active Substance: IODIXANOL
     Indication: DIABETES MELLITUS
  8. VISIPAQUE [Suspect]
     Active Substance: IODIXANOL
     Indication: CHEST PAIN
     Route: 013
     Dates: start: 20150810, end: 20150810

REACTIONS (4)
  - Cardiac arrest [Recovering/Resolving]
  - Chills [Recovering/Resolving]
  - Vomiting [Recovering/Resolving]
  - Seizure [Recovering/Resolving]

NARRATIVE: CASE EVENT DATE: 201508
